FAERS Safety Report 4505192-1 (Version None)
Quarter: 2004Q4

REPORT INFORMATION
  Report Type: 
  Country: None (occurrence: None)
  Receive Date: 20041118
  Receipt Date: 20041118
  Transmission Date: 20050328
  Serious: Yes (Other)
  Sender: FDA-Public Use
  Company Number: None

PATIENT
  Age: 59 Year
  Sex: Female

DRUGS (1)
  1. LEVAQUIN [Suspect]
     Indication: URINARY TRACT INFECTION
     Dosage: LEVAQUIN ONE TIME  INTRAVENOUS
     Route: 042
     Dates: start: 20041028, end: 20041028

REACTIONS (2)
  - INFUSION RELATED REACTION [None]
  - RASH PRURITIC [None]
